FAERS Safety Report 18455495 (Version 1)
Quarter: 2020Q4

REPORT INFORMATION
  Report Type: Spontaneous
  Country: US (occurrence: US)
  Receive Date: 20201103
  Receipt Date: 20201103
  Transmission Date: 20210114
  Serious: No
  Sender: FDA-Public Use
  Company Number: US-GLENMARK PHARMACEUTICALS-2020GMK049537

PATIENT

DRUGS (3)
  1. TACROLIMUS. [Suspect]
     Active Substance: TACROLIMUS
     Indication: SKIN EXFOLIATION
     Dosage: UNK, SINGLE (ONCE)
     Route: 061
     Dates: start: 20200903, end: 20200903
  2. TACROLIMUS. [Suspect]
     Active Substance: TACROLIMUS
     Indication: RASH
  3. TACROLIMUS. [Suspect]
     Active Substance: TACROLIMUS
     Indication: PRURITUS

REACTIONS (3)
  - Eye irritation [Unknown]
  - Eye pain [Unknown]
  - Drug ineffective [Unknown]

NARRATIVE: CASE EVENT DATE: 20200903
